FAERS Safety Report 6679773-3 (Version None)
Quarter: 2010Q2

REPORT INFORMATION
  Report Type: 
  Country: None (occurrence: None)
  Receive Date: 20100413
  Receipt Date: 20091016
  Transmission Date: 20101027
  Serious: No
  Sender: FDA-Public Use
  Company Number: US-ASTRAZENECA-2009SE20759

PATIENT
  Sex: Male

DRUGS (3)
  1. TENORMIN [Suspect]
  2. LISINOPRIL [Suspect]
  3. CHLORTHALIDONE [Concomitant]

REACTIONS (3)
  - DRUG INEFFECTIVE [None]
  - HEADACHE [None]
  - MENTAL DISORDER [None]
